FAERS Safety Report 4498340-3 (Version None)
Quarter: 2004Q4

REPORT INFORMATION
  Report Type: 
  Country: None (occurrence: None)
  Receive Date: 20041104
  Receipt Date: 20041018
  Transmission Date: 20050328
  Serious: Yes (Death, Hospitalization, Disabling)
  Sender: FDA-Public Use
  Company Number: 9044

PATIENT
  Age: 85 Year
  Sex: Male

DRUGS (1)
  1. AMIODARONE [Suspect]
     Indication: ATRIAL FIBRILLATION
     Dosage: 200 MG

REACTIONS (3)
  - DRUG TOXICITY [None]
  - INTERSTITIAL LUNG DISEASE [None]
  - SECONDARY HYPOTHYROIDISM [None]
